FAERS Safety Report 22587118 (Version 1)
Quarter: 2023Q2

REPORT INFORMATION
  Report Type: Spontaneous
  Country: NL (occurrence: NL)
  Receive Date: 20230612
  Receipt Date: 20230612
  Transmission Date: 20230722
  Serious: Yes (Other)
  Sender: FDA-Public Use
  Company Number: None

PATIENT
  Sex: Male
  Weight: 87 kg

DRUGS (2)
  1. PAZOPANIB [Suspect]
     Active Substance: PAZOPANIB
     Indication: Renal cell carcinoma
     Dosage: 600 MG, QD (1X PER DAG 1 STUK)
     Route: 065
     Dates: start: 20230318, end: 20230427
  2. PAZOPANIB [Suspect]
     Active Substance: PAZOPANIB
     Dosage: 400 MG, QD (1X PER DAG 1 STUK)
     Route: 065
     Dates: start: 20230427, end: 20230502

REACTIONS (4)
  - Hepatic encephalopathy [Unknown]
  - Liver injury [Recovering/Resolving]
  - Hypertransaminasaemia [Unknown]
  - Jaundice [Unknown]
